FAERS Safety Report 4342480-6 (Version None)
Quarter: 2004Q2

REPORT INFORMATION
  Report Type: 
  Country: None (occurrence: None)
  Receive Date: 20040419
  Receipt Date: 20040419
  Transmission Date: 20050107
  Serious: Yes (Hospitalization)
  Sender: FDA-Public Use
  Company Number: None

PATIENT
  Age: 77 Year
  Sex: Female

DRUGS (10)
  1. LIPITOR [Suspect]
     Indication: HYPERLIPIDAEMIA
     Dosage: 40 MG BID
     Dates: start: 20001017
  2. PRILOSEC [Concomitant]
  3. FUROSEMIDE [Concomitant]
  4. LOSARTIN [Concomitant]
  5. COREG [Concomitant]
  6. LEVOTHYROXIN [Concomitant]
  7. DIGOXIN [Concomitant]
  8. . [Concomitant]
  9. CELEXA [Concomitant]
  10. ASPIRIN [Concomitant]

REACTIONS (1)
  - RHABDOMYOLYSIS [None]
